FAERS Safety Report 10441376 (Version 1)
Quarter: 2014Q3

REPORT INFORMATION
  Report Type: Spontaneous
  Country: US (occurrence: None)
  Receive Date: 20140908
  Receipt Date: 20140908
  Transmission Date: 20150326
  Serious: Yes (Other)
  Sender: FDA-Public Use
  Company Number: None

PATIENT
  Age: 45 Year
  Sex: Female
  Weight: 56.7 kg

DRUGS (3)
  1. VITAMIN D [Concomitant]
     Active Substance: CHOLECALCIFEROL
  2. ASPIRIN. [Concomitant]
     Active Substance: ASPIRIN
  3. CLONAZEPAM TEVA [Suspect]
     Active Substance: CLONAZEPAM
     Indication: ANXIETY

REACTIONS (10)
  - Hyperhidrosis [None]
  - Emotional poverty [None]
  - Job dissatisfaction [None]
  - Headache [None]
  - Drug intolerance [None]
  - Depression [None]
  - Toothache [None]
  - Gingival pain [None]
  - Loss of libido [None]
  - Dementia [None]

NARRATIVE: CASE EVENT DATE: 20091212
